FAERS Safety Report 9437709 (Version 1)
Quarter: 2013Q3

REPORT INFORMATION
  Report Type: Spontaneous
  Country: GB (occurrence: None)
  Receive Date: 20130731
  Receipt Date: 20130731
  Transmission Date: 20140515
  Serious: Yes (Other)
  Sender: FDA-Public Use
  Company Number: 2013-002398

PATIENT
  Age: 81 Year
  Sex: Female

DRUGS (6)
  1. ACTONEL (RISEDRONATE SODIUM) TABLET, UNKMG [Suspect]
     Dates: start: 20130225
  2. CALCICHEW D3 (CALCIUM CARBONATE, COLECALCIFEROL) [Concomitant]
  3. CO-CODAMOL (CODEINE PHOSPHATE, PARACETAMOL) [Concomitant]
  4. GLYCEROL (GLYCEROL) [Concomitant]
  5. GLYCEROL (GLYCEROL) [Concomitant]
  6. MAGNESIUM CITRATE (MAGNESIUM CITRATE) [Concomitant]

REACTIONS (1)
  - Allergic myocarditis [None]
